FAERS Safety Report 13675122 (Version 2)
Quarter: 2018Q4

REPORT INFORMATION
  Report Type: Spontaneous
  Country: CA (occurrence: CA)
  Receive Date: 20170621
  Receipt Date: 20181218
  Transmission Date: 20190204
  Serious: Yes (Other)
  Sender: FDA-Public Use
  Company Number: CA-SA-2017SA109492

PATIENT
  Age: 71 Year
  Sex: Female

DRUGS (17)
  1. HUMIRA [Concomitant]
     Active Substance: ADALIMUMAB
     Indication: RHEUMATOID ARTHRITIS
     Dosage: 40 MG,UNK
     Route: 058
  2. REMICADE [Concomitant]
     Active Substance: INFLIXIMAB
     Dosage: UNK UNK,UNK
     Route: 042
  3. PREDNISONE. [Concomitant]
     Active Substance: PREDNISONE
     Dosage: UNK
  4. SODIUM AUROTHIOMALATE [Suspect]
     Active Substance: GOLD SODIUM THIOMALATE
     Dosage: UNK UNK,UNK
     Route: 051
  5. ARAVA [Suspect]
     Active Substance: LEFLUNOMIDE
     Indication: PRODUCT USE IN UNAPPROVED INDICATION
     Dosage: UNK UNK,UNK
     Route: 048
  6. ACTEMRA [Concomitant]
     Active Substance: TOCILIZUMAB
     Dosage: UNK
  7. RITUXAN [Concomitant]
     Active Substance: RITUXIMAB
     Dosage: UNK UNK,UNK
     Route: 042
  8. PLAQUENIL [Suspect]
     Active Substance: HYDROXYCHLOROQUINE SULFATE
     Dosage: UNK UNK,UNK
     Route: 048
  9. ENBREL [Concomitant]
     Active Substance: ETANERCEPT
     Indication: RHEUMATOID ARTHRITIS
     Dosage: UNK
  10. SIMPONI [Concomitant]
     Active Substance: GOLIMUMAB
     Dosage: UNK UNK,UNK
     Route: 058
  11. METHOTREXATE SODIUM. [Concomitant]
     Active Substance: METHOTREXATE SODIUM
     Indication: RHEUMATOID ARTHRITIS
     Dosage: UNK
  12. ORENCIA [Concomitant]
     Active Substance: ABATACEPT
     Dosage: UNK
  13. SULFASALAZINE. [Concomitant]
     Active Substance: SULFASALAZINE
     Indication: RHEUMATOID ARTHRITIS
     Dosage: UNK
  14. HYDROXYCHLOROQUINE [Concomitant]
     Active Substance: HYDROXYCHLOROQUINE
     Dosage: UNK
  15. LYRICA [Concomitant]
     Active Substance: PREGABALIN
     Indication: RHEUMATOID ARTHRITIS
     Dosage: UNK UNK,UNK
     Route: 048
  16. MYCOPHENOLATE MOFETIL. [Concomitant]
     Active Substance: MYCOPHENOLATE MOFETIL
     Dosage: UNK
  17. PIROXICAM. [Concomitant]
     Active Substance: PIROXICAM
     Dosage: UNK

REACTIONS (11)
  - Rheumatoid arthritis [Unknown]
  - Condition aggravated [Unknown]
  - Rash [Unknown]
  - Drug intolerance [Unknown]
  - Treatment failure [Unknown]
  - Unevaluable event [Unknown]
  - Drug hypersensitivity [Unknown]
  - Drug effect incomplete [Unknown]
  - Sciatica [Unknown]
  - Psoriatic arthropathy [Unknown]
  - Sinusitis [Unknown]
